FAERS Safety Report 4864407-0 (Version None)
Quarter: 2005Q4

REPORT INFORMATION
  Report Type: 
  Country: None (occurrence: None)
  Receive Date: 20051222
  Receipt Date: 20041230
  Transmission Date: 20060501
  Serious: Yes (Hospitalization)
  Sender: FDA-Public Use
  Company Number: US-MERCK-0501USA00022

PATIENT
  Age: 53 Year
  Sex: Female
  Weight: 80 kg

DRUGS (1)
  1. VIOXX [Suspect]
     Indication: OSTEOARTHRITIS
     Route: 048
     Dates: start: 20000301, end: 20041001

REACTIONS (7)
  - CEREBROVASCULAR ACCIDENT [None]
  - DIABETIC NEUROPATHY [None]
  - HYPERTENSION [None]
  - OSTEOPOROSIS [None]
  - SCOLIOSIS [None]
  - VAGINAL HAEMORRHAGE [None]
  - VOMITING [None]
